FAERS Safety Report 8025344-6 (Version None)
Quarter: 2012Q1

REPORT INFORMATION
  Report Type: 
  Country: None (occurrence: None)
  Receive Date: 20120105
  Receipt Date: 20120102
  Transmission Date: 20120608
  Serious: Yes (Hospitalization)
  Sender: FDA-Public Use
  Company Number: FR-ELI_LILLY_AND_COMPANY-FR201201000057

PATIENT
  Sex: Female

DRUGS (3)
  1. ATENOLOL [Concomitant]
     Dosage: 25 MG, QD
     Route: 048
  2. KARDEGIC                                /FRA/ [Concomitant]
     Dosage: 75 MG, QD
     Route: 048
  3. CYMBALTA [Suspect]
     Indication: DEPRESSION
     Dosage: UNK UNK, SINGLE
     Route: 048
     Dates: start: 20110612, end: 20110612

REACTIONS (4)
  - DELIRIUM [None]
  - ECCHYMOSIS [None]
  - HALLUCINATION [None]
  - ACCIDENTAL OVERDOSE [None]
